FAERS Safety Report 7950308-8 (Version None)
Quarter: 2011Q4

REPORT INFORMATION
  Report Type: 
  Country: None (occurrence: None)
  Receive Date: 20111130
  Receipt Date: 20111118
  Transmission Date: 20120403
  Serious: Yes (Hospitalization)
  Sender: FDA-Public Use
  Company Number: US-BAYER-2011-046625

PATIENT
  Age: 29 Year
  Sex: Female
  Weight: 63.492 kg

DRUGS (2)
  1. RETIN-A [Concomitant]
     Dosage: 0.025 %, HS
     Route: 061
  2. YASMIN [Suspect]
     Indication: CONTRACEPTION
     Dosage: UNK
     Dates: start: 20090401, end: 20090525

REACTIONS (22)
  - ANXIETY [None]
  - HEART RATE IRREGULAR [None]
  - BLOOD POTASSIUM DECREASED [None]
  - OXYGEN SATURATION DECREASED [None]
  - INJURY [None]
  - PAIN [None]
  - PARAESTHESIA [None]
  - HYPOPNOEA [None]
  - BLOOD PRESSURE INCREASED [None]
  - HEADACHE [None]
  - PULMONARY EMBOLISM [None]
  - PALPITATIONS [None]
  - VAGINAL HAEMORRHAGE [None]
  - EMOTIONAL DISTRESS [None]
  - GENERAL PHYSICAL HEALTH DETERIORATION [None]
  - DYSPNOEA [None]
  - CHEST PAIN [None]
  - MUSCULOSKELETAL CHEST PAIN [None]
  - SCAR [None]
  - MIGRAINE [None]
  - ASTHENIA [None]
  - DIZZINESS [None]
